FAERS Safety Report 20868157 (Version 2)
Quarter: 2022Q3

REPORT INFORMATION
  Report Type: Spontaneous
  Country: SG (occurrence: SG)
  Receive Date: 20220524
  Receipt Date: 20220706
  Transmission Date: 20221027
  Serious: Yes (Other)
  Sender: FDA-Public Use
  Company Number: SG-JNJFOC-20220538541

PATIENT
  Sex: Male

DRUGS (1)
  1. ESKETAMINE [Suspect]
     Active Substance: ESKETAMINE
     Indication: Product used for unknown indication

REACTIONS (4)
  - Suicide attempt [Unknown]
  - Condition aggravated [Unknown]
  - Depressed mood [Unknown]
  - Drug ineffective [Unknown]
